FAERS Safety Report 24441811 (Version 2)
Quarter: 2024Q4

REPORT INFORMATION
  Report Type: Report from Study
  Country: US (occurrence: US)
  Receive Date: 20241016
  Receipt Date: 20241017
  Transmission Date: 20250114
  Serious: No
  Sender: ROCHE
  Company Number: US-ROCHE-3509126

PATIENT
  Age: 29 Year
  Sex: Male

DRUGS (2)
  1. HEMLIBRA [Suspect]
     Active Substance: EMICIZUMAB-KXWH
     Indication: Factor VIII deficiency
     Dosage: INJECT 2.76ML (414MG) SUBCUTANEOUSLY EVERY 2 WEEK(S) (USE 2ML FROM 2-150MG VIALS AND 0.76ML FROM 2-6
     Route: 058
  2. HEMLIBRA [Suspect]
     Active Substance: EMICIZUMAB-KXWH
     Indication: Factor VIII deficiency

REACTIONS (1)
  - COVID-19 [Unknown]
